FAERS Safety Report 5738802-1 (Version None)
Quarter: 2008Q2

REPORT INFORMATION
  Report Type: 
  Country: None (occurrence: None)
  Receive Date: 20080515
  Receipt Date: 20080311
  Transmission Date: 20081010
  Serious: No
  Sender: FDA-Public Use
  Company Number: A0714614A

PATIENT
  Age: 8 Year
  Sex: Male

DRUGS (4)
  1. VERAMYST [Suspect]
     Indication: INFECTION PROPHYLAXIS
     Dosage: 2PUFF PER DAY
     Route: 045
     Dates: start: 20080101, end: 20080309
  2. ZYRTEC [Concomitant]
  3. FLOVENT [Concomitant]
  4. XOPENEX [Concomitant]

REACTIONS (4)
  - BACK PAIN [None]
  - EPISTAXIS [None]
  - HEADACHE [None]
  - NAUSEA [None]
